FAERS Safety Report 4510929-1 (Version None)
Quarter: 2004Q4

REPORT INFORMATION
  Report Type: 
  Country: None (occurrence: None)
  Receive Date: 20041025
  Receipt Date: 20030827
  Transmission Date: 20050328
  Serious: Yes (Hospitalization)
  Sender: FDA-Public Use
  Company Number: NSADSS2002043315

PATIENT
  Age: 81 Year
  Sex: Female
  Weight: 112.0385 kg

DRUGS (10)
  1. REMICADE [Suspect]
     Indication: RHEUMATOID ARTHRITIS
     Dosage: 300 MG, 1 IN 1 AS NECESSARY, INTRAVENOUS DRIP
     Route: 042
     Dates: start: 20020221, end: 20020221
  2. REMICADE [Suspect]
     Indication: RHEUMATOID ARTHRITIS
     Dosage: 300 MG, 1 IN 1 AS NECESSARY, INTRAVENOUS DRIP
     Route: 042
     Dates: start: 20020401, end: 20020401
  3. PREDNISONE [Concomitant]
  4. METHOTREXATE [Concomitant]
  5. PLAQUENIL [Concomitant]
  6. CELEBREX [Concomitant]
  7. FOLIC ACID [Concomitant]
  8. FOSAMAX [Concomitant]
  9. TRIAM (TRAIMCINOLONE ACETONIDE) [Concomitant]
  10. HYDROCHLOROTHIAZIDE [Concomitant]

REACTIONS (2)
  - ESCHERICHIA URINARY TRACT INFECTION [None]
  - PSEUDOMONAS INFECTION [None]
